FAERS Safety Report 7177776-6 (Version None)
Quarter: 2010Q4

REPORT INFORMATION
  Report Type: 
  Country: None (occurrence: None)
  Receive Date: 20101220
  Receipt Date: 20101213
  Transmission Date: 20110411
  Serious: Yes (Other)
  Sender: FDA-Public Use
  Company Number: US-B.I. PHARMACEUTICALS,INC./RIDGEFIELD-2010-BP-12910BP

PATIENT
  Age: 65 Year
  Sex: Female
  Weight: 78.9 kg

DRUGS (6)
  1. PRADAXA [Suspect]
     Indication: THROMBOSIS
     Dosage: 300 MG
     Dates: start: 20101115, end: 20101118
  2. INDEROL [Concomitant]
     Dosage: 40 MG
  3. PHENEGRAN [Concomitant]
     Dosage: 25 MG
  4. LOMOTIL [Concomitant]
  5. PREDNISONE [Concomitant]
     Dosage: 5 MG
  6. AVAPRO [Concomitant]
     Dosage: 300 MG

REACTIONS (4)
  - CHEST PAIN [None]
  - MIGRAINE [None]
  - NAUSEA [None]
  - VOMITING [None]
